FAERS Safety Report 4638971-0 (Version None)
Quarter: 2005Q2

REPORT INFORMATION
  Report Type: 
  Country: None (occurrence: None)
  Receive Date: 20050419
  Receipt Date: 20050407
  Transmission Date: 20051028
  Serious: Yes (Other)
  Sender: FDA-Public Use
  Company Number: IT-MERCK-0504ITA00011

PATIENT
  Age: 51 Year

DRUGS (3)
  1. CRIXIVAN [Suspect]
     Indication: HIV TEST POSITIVE
     Route: 065
  2. STAVUDINE [Concomitant]
     Indication: HIV TEST POSITIVE
     Route: 065
  3. LAMIVUDINE [Concomitant]
     Indication: HIV TEST POSITIVE
     Route: 065

REACTIONS (3)
  - CYTOMEGALOVIRUS CHORIORETINITIS [None]
  - IMMUNE RECONSTITUTION SYNDROME [None]
  - UVEITIS [None]
